FAERS Safety Report 15213774 (Version 2)
Quarter: 2018Q3

REPORT INFORMATION
  Report Type: Spontaneous
  Country: US (occurrence: US)
  Receive Date: 20180730
  Receipt Date: 20180810
  Transmission Date: 20181010
  Serious: No
  Sender: FDA-Public Use
  Company Number: US-TEVA-2018-US-934704

PATIENT
  Age: 81 Year
  Sex: Female

DRUGS (1)
  1. QVAR [Suspect]
     Active Substance: BECLOMETHASONE DIPROPIONATE
     Dosage: 2 PUFFS DAILY
     Dates: end: 201807

REACTIONS (3)
  - Cough [Unknown]
  - Throat irritation [Unknown]
  - Wrong technique in product usage process [Unknown]
